FAERS Safety Report 8672276 (Version 2)
Quarter: 2013Q4

REPORT INFORMATION
  Report Type: Spontaneous
  Country: US (occurrence: US)
  Receive Date: 20120719
  Receipt Date: 20131101
  Transmission Date: 20140711
  Serious: No
  Sender: FDA-Public Use
  Company Number: US-009507513-1207USA001613

PATIENT
  Age: 43 Year
  Sex: Female
  Weight: 107.48 kg

DRUGS (6)
  1. PEG-INTRON [Suspect]
     Dosage: 150 MICROGRAM, QW
  2. LISINOPRIL [Concomitant]
     Dosage: 10 MG, UNK
  3. ESCITALOPRAM [Concomitant]
     Dosage: 10 MG, UNK
  4. RIBAPAK [Concomitant]
     Dosage: PAK 1200, QD
  5. TYLENOL [Concomitant]
     Dosage: 650 MG, Q8H
  6. RIBASPHERE [Concomitant]
     Dosage: 200 MG, UNK

REACTIONS (3)
  - Anaemia [Unknown]
  - Diarrhoea [Unknown]
  - Influenza like illness [Unknown]
